FAERS Safety Report 5447914-1 (Version None)
Quarter: 2007Q3

REPORT INFORMATION
  Report Type: 
  Country: None (occurrence: None)
  Receive Date: 20070910
  Receipt Date: 20070829
  Transmission Date: 20080115
  Serious: Yes (Hospitalization)
  Sender: FDA-Public Use
  Company Number: IN-PFIZER INC-2007073226

PATIENT
  Sex: Male

DRUGS (1)
  1. MAGNEX [Suspect]
     Indication: NOSOCOMIAL INFECTION
     Route: 042

REACTIONS (1)
  - ILEUS PARALYTIC [None]
